FAERS Safety Report 5519195-1 (Version None)
Quarter: 2007Q4

REPORT INFORMATION
  Report Type: 
  Country: None (occurrence: None)
  Receive Date: 20071114
  Receipt Date: 20071105
  Transmission Date: 20080405
  Serious: Yes (Other)
  Sender: FDA-Public Use
  Company Number: 2007334772

PATIENT
  Sex: Female

DRUGS (1)
  1. LISTERINE WHITENING  PRE-BRUSH RINSE (NO ACTIVE INGREDIENT) [Suspect]
     Dosage: ONCE, ORAL
     Route: 048
     Dates: start: 20071104, end: 20071104

REACTIONS (4)
  - APHTHOUS STOMATITIS [None]
  - BURNING SENSATION [None]
  - GINGIVAL OEDEMA [None]
  - RASH PUSTULAR [None]
